FAERS Safety Report 4532153-9 (Version None)
Quarter: 2004Q4

REPORT INFORMATION
  Report Type: 
  Country: None (occurrence: None)
  Receive Date: 20041220
  Receipt Date: 20041209
  Transmission Date: 20050328
  Serious: Yes (Other)
  Sender: FDA-Public Use
  Company Number: JP-JNJFOC-20041200939

PATIENT
  Age: 58 Year
  Sex: Female

DRUGS (6)
  1. RISPERDAL [Suspect]
     Route: 049
  2. RISPERDAL [Suspect]
     Indication: DRUG USE FOR UNKNOWN INDICATION
     Route: 049
  3. FLUNITRAZEPAM [Concomitant]
     Route: 049
  4. SULPIRIDE [Concomitant]
     Route: 049
  5. CHINESE MEDICINES [Concomitant]
  6. ATORVASTATIN CALCIUM [Concomitant]

REACTIONS (11)
  - BLOOD CREATINE PHOSPHOKINASE INCREASED [None]
  - CATATONIA [None]
  - HALLUCINATION [None]
  - HALLUCINATION, VISUAL [None]
  - INCOHERENT [None]
  - MYOGLOBIN BLOOD INCREASED [None]
  - PETIT MAL EPILEPSY [None]
  - POLLAKIURIA [None]
  - RHABDOMYOLYSIS [None]
  - SYNCOPE [None]
  - TREMOR [None]
